FAERS Safety Report 14261367 (Version 2)
Quarter: 2017Q4

REPORT INFORMATION
  Report Type: Report from Study
  Country: FR (occurrence: FR)
  Receive Date: 20171208
  Receipt Date: 20171214
  Transmission Date: 20180321
  Serious: Yes (Hospitalization, Other)
  Sender: FDA-Public Use
  Company Number: FR-JAZZ-2017-FR-016170

PATIENT

DRUGS (9)
  1. CYCLOSPORIN [Concomitant]
     Active Substance: CYCLOSPORINE
     Indication: PROPHYLAXIS AGAINST GRAFT VERSUS HOST DISEASE
     Dosage: 200 MG, QD
     Route: 048
     Dates: start: 20140327, end: 20140805
  2. TIENAM [Concomitant]
     Active Substance: CILASTATIN SODIUM\IMIPENEM
     Indication: ANTIBIOTIC THERAPY
     Dosage: 1500 MG, QD
     Route: 042
     Dates: start: 20140410, end: 20140518
  3. DEFITELIO [Suspect]
     Active Substance: DEFIBROTIDE SODIUM
     Indication: VENOOCCLUSIVE DISEASE
     Dosage: 1600 MG, QD
     Route: 042
     Dates: start: 20140409, end: 20140602
  4. ALDACTONE [Concomitant]
     Active Substance: SPIRONOLACTONE
     Indication: BLOOD PRESSURE MANAGEMENT
     Dosage: 150 MG, QD
     Route: 048
     Dates: start: 20140409, end: 20140619
  5. HEPARIN [Concomitant]
     Active Substance: HEPARIN SODIUM
     Indication: VENOOCCLUSIVE DISEASE
     Dosage: 5000 IU, QD
     Route: 042
     Dates: start: 20140317, end: 20140514
  6. COLIMYCIN                          /00013203/ [Concomitant]
     Indication: ANTIBIOTIC THERAPY
     Dosage: 600000 IU, QD
     Route: 048
     Dates: start: 20140317, end: 20140505
  7. CELLCEPT [Concomitant]
     Active Substance: MYCOPHENOLATE MOFETIL\MYCOPHENOLATE MOFETIL HYDROCHLORIDE
     Indication: PROPHYLAXIS AGAINST GRAFT VERSUS HOST DISEASE
     Dosage: 2700 MG, QD
     Route: 048
     Dates: start: 20140327, end: 20140512
  8. VANCOMYCIN [Concomitant]
     Active Substance: VANCOMYCIN
     Indication: ANTIBIOTIC THERAPY
     Dosage: 700 MG, QD
     Route: 042
     Dates: start: 20140504, end: 20140505
  9. BACTRIM [Concomitant]
     Active Substance: SULFAMETHOXAZOLE\TRIMETHOPRIM
     Indication: PRODUCT USED FOR UNKNOWN INDICATION
     Dosage: 800 MG, QD
     Route: 048
     Dates: start: 20140425, end: 20140516

REACTIONS (4)
  - Renal failure [Recovered/Resolved]
  - Pericardial effusion [Unknown]
  - Pulmonary oedema [Recovered/Resolved]
  - Haemorrhage [Unknown]

NARRATIVE: CASE EVENT DATE: 20140505
